FAERS Safety Report 25429789 (Version 1)
Quarter: 2025Q2

REPORT INFORMATION
  Report Type: Spontaneous
  Country: US (occurrence: US)
  Receive Date: 20250612
  Receipt Date: 20250612
  Transmission Date: 20250717
  Serious: No
  Sender: BAYER HEALTHCARE LLC
  Company Number: US-BAYER-2025A074248

PATIENT
  Age: 72 Year
  Sex: Female

DRUGS (2)
  1. CLARITIN LIQUI-GELS [Suspect]
     Active Substance: LORATADINE
     Indication: Hypersensitivity
     Route: 048
     Dates: start: 20250523, end: 20250530
  2. CLARITIN LIQUI-GELS [Suspect]
     Active Substance: LORATADINE
     Indication: Nasopharyngitis

REACTIONS (4)
  - Tongue discomfort [Recovered/Resolved with Sequelae]
  - Glossodynia [Recovered/Resolved with Sequelae]
  - Odynophagia [Recovered/Resolved with Sequelae]
  - Product shape issue [None]

NARRATIVE: CASE EVENT DATE: 20250523
